FAERS Safety Report 10565207 (Version 4)
Quarter: 2015Q1

REPORT INFORMATION
  Report Type: Spontaneous
  Country: AT (occurrence: None)
  Receive Date: 20141103
  Receipt Date: 20150326
  Transmission Date: 20150720
  Serious: Yes (Hospitalization)
  Sender: FDA-Public Use
  Company Number: 2014291753

PATIENT
  Age: 82 Year
  Sex: Female
  Weight: 70 kg

DRUGS (18)
  1. PANTOPRAZOLE SODIUM (PANTOPRAZOLE SODIUM) [Concomitant]
  2. FRAGMIN [Suspect]
     Active Substance: DALTEPARIN SODIUM
     Route: 058
     Dates: start: 201407
  3. TEMESTA (LORAZEPAM) [Concomitant]
     Active Substance: LORAZEPAM
  4. VITAMEDIN INTRAVENOUS (CYANOCOBALAMIN, PYRIDOXINE HYDROCHLORIDE, THIAMINE DISULFIDE) [Concomitant]
  5. ATARAX [Concomitant]
     Active Substance: HYDROXYZINE\HYDROXYZINE HYDROCHLORIDE
  6. PYRIDOXINE HYDROCHLORIDE (PYRIDOXINE HYDROCHLORIDE) [Concomitant]
  7. FILGRASTIM (FILGRASTIM) [Concomitant]
     Active Substance: FILGRASTIM
  8. OLEOVIT-D3 (COLECALCIFEROL) [Concomitant]
  9. VALERIANA OFFICINALIS (VALRIANA OFFICINALIS) [Concomitant]
  10. TRIMETHOPRIM. [Suspect]
     Active Substance: TRIMETHOPRIM
     Dates: start: 20140722, end: 20140728
  11. TEBOFORTAN (GINKGO BILOBA) [Concomitant]
  12. IBANDRONATE SODIUM (IBANDRONATE SODIUM) [Concomitant]
  13. OLANZAPINE (OLANZAPINE) [Concomitant]
     Active Substance: OLANZAPINE
  14. ANAEROBEX (METRONIDAZOLE) [Concomitant]
  15. THYREX (LEVOTHYROXINE SODIUM) [Concomitant]
  16. DICLOFENAC (DICLOFENAC) [Concomitant]
     Active Substance: DICLOFENAC SODIUM
  17. D-CALSOR (CALCIUM PHOSPHATE DIBASIC, COLECALCIFEROL) [Concomitant]
  18. MIRTAZAPINE. [Suspect]
     Active Substance: MIRTAZAPINE
     Dates: start: 20140721, end: 20140722

REACTIONS (1)
  - Neutropenia [None]

NARRATIVE: CASE EVENT DATE: 20140804
